FAERS Safety Report 4639194-1 (Version None)
Quarter: 2005Q2

REPORT INFORMATION
  Report Type: 
  Country: None (occurrence: None)
  Receive Date: 20050418
  Receipt Date: 20050404
  Transmission Date: 20051028
  Serious: No
  Sender: FDA-Public Use
  Company Number: 2003GB01946

PATIENT
  Age: 70 Year
  Sex: Male

DRUGS (1)
  1. CASODEX [Suspect]
     Indication: PROSTATE CANCER
     Dosage: 150 MG QD PO
     Route: 048
     Dates: start: 20020501, end: 20030601

REACTIONS (4)
  - BREAST CANCER MALE [None]
  - GYNAECOMASTIA [None]
  - NIPPLE PAIN [None]
  - OESTROGEN RECEPTOR ASSAY POSITIVE [None]
